FAERS Safety Report 5311223-1 (Version None)
Quarter: 2007Q2

REPORT INFORMATION
  Report Type: 
  Country: None (occurrence: None)
  Receive Date: 20070430
  Receipt Date: 20070410
  Transmission Date: 20071010
  Serious: Yes (Hospitalization)
  Sender: FDA-Public Use
  Company Number: PHHO2007DE06343

PATIENT
  Age: 41 Year
  Sex: Male
  Weight: 110 kg

DRUGS (2)
  1. ALISKIREN/HCTZ VS HCTZ [Suspect]
     Indication: ESSENTIAL HYPERTENSION
     Dosage: CODE NOT BROKEN
     Route: 048
  2. ESIDRIX [Suspect]
     Indication: ESSENTIAL HYPERTENSION
     Dosage: CODE NOT BROKEN
     Route: 048

REACTIONS (2)
  - CLAVICLE FRACTURE [None]
  - ROAD TRAFFIC ACCIDENT [None]
